FAERS Safety Report 6579147-X (Version None)
Quarter: 2010Q1

REPORT INFORMATION
  Report Type: 
  Country: None (occurrence: None)
  Receive Date: 20100203
  Receipt Date: 20100121
  Transmission Date: 20100710
  Serious: Yes (Congenital Anomaly)
  Sender: FDA-Public Use
  Company Number: 2010AL000572

PATIENT
  Sex: Female

DRUGS (4)
  1. METFORMIN HYDROCHLORIDE [Suspect]
     Indication: TYPE 2 DIABETES MELLITUS
     Dosage: 500 MG; TID; TRPL
     Route: 064
     Dates: start: 20050510, end: 20090612
  2. BYETTA [Concomitant]
  3. LABETALOL [Concomitant]
  4. INSULIN [Concomitant]

REACTIONS (4)
  - CAESAREAN SECTION [None]
  - INTESTINAL MALROTATION [None]
  - MATERNAL DRUGS AFFECTING FOETUS [None]
  - PREMATURE BABY [None]
